FAERS Safety Report 6003238-5 (Version None)
Quarter: 2008Q4

REPORT INFORMATION
  Report Type: 
  Country: None (occurrence: None)
  Receive Date: 20081212
  Receipt Date: 20081212
  Transmission Date: 20090506
  Serious: Yes (Hospitalization)
  Sender: FDA-Public Use
  Company Number: None

PATIENT
  Age: 73 Year
  Sex: Female
  Weight: 77 kg

DRUGS (7)
  1. LOTREL [Suspect]
     Indication: HYPERTENSION
     Dosage: PO
     Route: 048
  2. SIMVASTATIN [Concomitant]
  3. TRAMADOL [Concomitant]
  4. METFORMIN HCL [Concomitant]
  5. METOPROLOL [Concomitant]
  6. FLEXERIL [Concomitant]
  7. LEVOTHYROXINE [Concomitant]

REACTIONS (1)
  - ANGIOEDEMA [None]
